FAERS Safety Report 17563635 (Version 2)
Quarter: 2020Q3

REPORT INFORMATION
  Report Type: Report from Study
  Country: US (occurrence: US)
  Receive Date: 20200320
  Receipt Date: 20200703
  Transmission Date: 20201102
  Serious: Yes (Other)
  Sender: FDA-Public Use
  Company Number: US-ROCHE-2565939

PATIENT
  Age: 60 Year
  Sex: Female
  Weight: 66.5 kg

DRUGS (2)
  1. DOXORUBICIN [Suspect]
     Active Substance: DOXORUBICIN
     Indication: OVARIAN CANCER
     Dosage: DATE OF MOST RECENT DOSE DOXORUBICIN (68 MG) PRIOR TO AE ONSET: 27/NOV/2018
     Route: 042
     Dates: start: 20180710
  2. ATEZOLIZUMAB. [Suspect]
     Active Substance: ATEZOLIZUMAB
     Indication: OVARIAN CANCER
     Dosage: DATE OF MOST RECENT DOSE OF ATEZOLIZUMAB (1600 MG) PRIOR TO AE ONSET: 11/DEC/2018
     Route: 041
     Dates: start: 20180710

REACTIONS (2)
  - Pruritus [Recovering/Resolving]
  - Rash maculo-papular [Recovering/Resolving]

NARRATIVE: CASE EVENT DATE: 20180918
